FAERS Safety Report 8268463-1 (Version None)
Quarter: 2012Q2

REPORT INFORMATION
  Report Type: 
  Country: None (occurrence: None)
  Receive Date: 20120409
  Receipt Date: 20120320
  Transmission Date: 20120825
  Serious: Yes (Other)
  Sender: FDA-Public Use
  Company Number: US-GLAXOSMITHKLINE-A0970523A

PATIENT
  Age: 84 Year
  Sex: Male
  Weight: 73.2 kg

DRUGS (1)
  1. ARZERRA [Suspect]
     Indication: PRODUCT USED FOR UNKNOWN INDICATION
     Dosage: 300MG CONTINUOUS
     Route: 042
     Dates: start: 20120320, end: 20120320

REACTIONS (4)
  - HYPOTENSION [None]
  - CHEST PAIN [None]
  - PRURITUS [None]
  - DYSPNOEA [None]
